FAERS Safety Report 10648041 (Version 1)
Quarter: 2014Q4

REPORT INFORMATION
  Report Type: Spontaneous
  Country: GB (occurrence: GB)
  Receive Date: 20141212
  Receipt Date: 20141212
  Transmission Date: 20150529
  Serious: Yes (Death)
  Sender: FDA-Public Use
  Company Number: GB-CIPLA LTD.-2014GB02354

PATIENT

DRUGS (6)
  1. OXALIPLATIN. [Suspect]
     Active Substance: OXALIPLATIN
     Indication: GERM CELL CANCER
     Dosage: 100MG/M2 GIVEN ON D1
  2. CARBOPLATIN. [Suspect]
     Active Substance: CARBOPLATIN
     Indication: GERM CELL CANCER
     Dosage: AUC 7 FOLLOWED 12 HOURS LATER BY TOPOTECAN DOSE
  3. PACLITAXEL. [Suspect]
     Active Substance: PACLITAXEL
     Indication: GERM CELL CANCER
     Dosage: 80 MG/M2 ADMINISTERED ON D1, D8 AND D15
  4. ETOPOSIDE. [Suspect]
     Active Substance: ETOPOSIDE
     Indication: GERM CELL CANCER
     Dosage: UNK
  5. IRINOTECAN [Suspect]
     Active Substance: IRINOTECAN
     Indication: GERM CELL CANCER
     Dosage: 200MG/M2 3 WEEKLY REGIMEN
  6. FILGRASTIM [Concomitant]
     Active Substance: FILGRASTIM
     Dosage: 300MCG/DAY WAS GIVEN ON ALTERNATE DAYS FROM DAY 2 TO DAY 14

REACTIONS (1)
  - Intestinal infarction [Fatal]
